FAERS Safety Report 24989340 (Version 2)
Quarter: 2025Q3

REPORT INFORMATION
  Report Type: Report from Study
  Country: US (occurrence: None)
  Receive Date: 20250220
  Receipt Date: 20250810
  Transmission Date: 20251020
  Serious: Yes (Other)
  Sender: ALEXION PHARMACEUTICALS
  Company Number: US-AstraZeneca-2013SE29566

PATIENT
  Age: 42 Year
  Sex: Female
  Weight: 122.47 kg

DRUGS (10)
  1. NEXIUM [Suspect]
     Active Substance: ESOMEPRAZOLE MAGNESIUM
     Indication: Ulcer haemorrhage
  2. NEXIUM [Suspect]
     Active Substance: ESOMEPRAZOLE MAGNESIUM
     Dosage: 40 MILLIGRAM, QD
     Dates: start: 2010
  3. SEROQUEL XR [Suspect]
     Active Substance: QUETIAPINE FUMARATE
     Indication: Post-traumatic stress disorder
  4. SEROQUEL XR [Suspect]
     Active Substance: QUETIAPINE FUMARATE
     Dosage: 150 MILLIGRAM, QD
     Dates: start: 2012, end: 201307
  5. SEROQUEL XR [Suspect]
     Active Substance: QUETIAPINE FUMARATE
     Dosage: 300 MILLIGRAM, QD
  6. GABAPENTIN [Concomitant]
     Active Substance: GABAPENTIN
     Indication: Neuropathy peripheral
     Dosage: 300 MILLIGRAM, TID
     Dates: start: 201305
  7. PROMETHAZINE [Concomitant]
     Active Substance: PROMETHAZINE HYDROCHLORIDE
     Indication: Migraine
     Dates: start: 2010
  8. PROMETHAZINE [Concomitant]
     Active Substance: PROMETHAZINE HYDROCHLORIDE
     Indication: Vomiting
  9. ESCITALOPRAM [Concomitant]
     Active Substance: ESCITALOPRAM OXALATE
     Indication: Antidepressant therapy
     Dosage: 20 MILLIGRAM, BID
     Dates: start: 2012
  10. ARIXTRA [Concomitant]
     Active Substance: FONDAPARINUX SODIUM
     Indication: Anticoagulant therapy

REACTIONS (26)
  - Upper gastrointestinal haemorrhage [Unknown]
  - Brain injury [Unknown]
  - Traumatic intracranial haemorrhage [Unknown]
  - Jaw fracture [Unknown]
  - Pulmonary embolism [Unknown]
  - Foot fracture [Unknown]
  - Asphyxia [Unknown]
  - Haematemesis [Unknown]
  - Fall [Unknown]
  - Product dose omission issue [Unknown]
  - Depression [Unknown]
  - Tympanic membrane perforation [Unknown]
  - Crying [Unknown]
  - Balance disorder [Unknown]
  - Amnesia [Unknown]
  - Weight increased [Unknown]
  - Hypertension [Unknown]
  - Tremor [Unknown]
  - Neuropathy peripheral [Unknown]
  - Anxiety [Unknown]
  - Visual impairment [Unknown]
  - Hypoaesthesia [Unknown]
  - Coagulation factor V level abnormal [Unknown]
  - Lung disorder [Unknown]
  - Insomnia [Unknown]
  - Product use in unapproved indication [Unknown]

NARRATIVE: CASE EVENT DATE: 20100101
